FAERS Safety Report 7493587-6 (Version None)
Quarter: 2011Q2

REPORT INFORMATION
  Report Type: 
  Country: None (occurrence: None)
  Receive Date: 20110520
  Receipt Date: 20110511
  Transmission Date: 20111010
  Serious: Yes (Other)
  Sender: FDA-Public Use
  Company Number: FR-SANOFI-AVENTIS-2011SA030726

PATIENT
  Age: 58 Year
  Sex: Male

DRUGS (4)
  1. FLUOROURACIL [Concomitant]
     Route: 042
     Dates: start: 20110203
  2. ELOXATIN [Suspect]
     Route: 042
     Dates: start: 20110202, end: 20110202
  3. OLMESARTAN MEDOXOMIL [Concomitant]
     Route: 048
  4. LEUCOVORIN CALCIUM [Concomitant]
     Route: 042
     Dates: start: 20110202

REACTIONS (1)
  - DERMATITIS BULLOUS [None]
